FAERS Safety Report 5224625-9 (Version None)
Quarter: 2007Q1

REPORT INFORMATION
  Report Type: 
  Country: None (occurrence: None)
  Receive Date: 20061201
  Receipt Date: 20060907
  Transmission Date: 20070707
  Serious: No
  Sender: FDA-Public Use
  Company Number: 2006PV020875

PATIENT
  Age: 73 Year
  Sex: Male
  Weight: 87.5442 kg

DRUGS (4)
  1. BYETTA [Suspect]
     Indication: DIABETES MELLITUS NON-INSULIN-DEPENDENT
     Dosage: 5 MCG;BID;SC
     Route: 058
     Dates: start: 20060901
  2. LANTUS [Concomitant]
  3. GLUCOPHAGE [Concomitant]
  4. AMARYL [Concomitant]

REACTIONS (3)
  - ABDOMINAL DISTENSION [None]
  - BLOOD GLUCOSE INCREASED [None]
  - CONSTIPATION [None]
